FAERS Safety Report 7908023-2 (Version None)
Quarter: 2011Q4

REPORT INFORMATION
  Report Type: 
  Country: None (occurrence: None)
  Receive Date: 20111110
  Receipt Date: 20111101
  Transmission Date: 20120403
  Serious: Yes (Other)
  Sender: FDA-Public Use
  Company Number: US-ASTRAZENECA-2011SE06180

PATIENT
  Age: 644 Month
  Sex: Female
  Weight: 80.3 kg

DRUGS (2)
  1. CRESTOR [Suspect]
     Route: 048
  2. CRESTOR [Suspect]
     Route: 048

REACTIONS (20)
  - IRRITABLE BOWEL SYNDROME [None]
  - DYSLIPIDAEMIA [None]
  - ARTHRALGIA [None]
  - FATIGUE [None]
  - ABDOMINAL PAIN [None]
  - OEDEMA PERIPHERAL [None]
  - DISCOMFORT [None]
  - OROPHARYNGEAL PAIN [None]
  - RHINITIS ALLERGIC [None]
  - BREAST PAIN [None]
  - ABDOMINAL DISTENSION [None]
  - PARAESTHESIA [None]
  - IMPLANT SITE DISCHARGE [None]
  - BREAST CANCER [None]
  - HYPOAESTHESIA [None]
  - FIBROMYALGIA [None]
  - MYALGIA [None]
  - PAIN IN EXTREMITY [None]
  - HYPERSENSITIVITY [None]
  - ASTHENIA [None]
